FAERS Safety Report 6005339-4 (Version None)
Quarter: 2008Q4

REPORT INFORMATION
  Report Type: 
  Country: None (occurrence: None)
  Receive Date: 20081215
  Receipt Date: 20081204
  Transmission Date: 20090506
  Serious: Yes (Hospitalization)
  Sender: FDA-Public Use
  Company Number: 2008SP024604

PATIENT
  Age: 75 Year
  Sex: Male
  Weight: 90 kg

DRUGS (7)
  1. TEMOZOLOMIDE [Suspect]
     Indication: GLIOBLASTOMA MULTIFORME
     Dosage: 155 MG; QOW; IV
     Route: 042
     Dates: start: 20080820, end: 20081003
  2. BEVACIZUMAB [Suspect]
     Indication: GLIOBLASTOMA MULTIFORME
     Dosage: 900 MG; QOW; IV
     Route: 042
     Dates: start: 20080820
  3. PYRIDIUM [Concomitant]
  4. METOPROLOL [Concomitant]
  5. HYDROCHLOROTHIAZIDE [Concomitant]
  6. KEPPRA [Concomitant]
  7. BACTRIM DS [Concomitant]

REACTIONS (5)
  - ATAXIA [None]
  - CONFUSIONAL STATE [None]
  - HAEMATOMA [None]
  - MENTAL STATUS CHANGES [None]
  - URINARY TRACT INFECTION [None]
